FAERS Safety Report 5283396-0 (Version None)
Quarter: 2007Q2

REPORT INFORMATION
  Report Type: 
  Country: None (occurrence: None)
  Receive Date: 20070402
  Receipt Date: 20070327
  Transmission Date: 20071010
  Serious: Yes (Other)
  Sender: FDA-Public Use
  Company Number: EG-AVENTIS-200711563EU

PATIENT
  Age: 60 Year
  Sex: Female

DRUGS (2)
  1. LASIX [Suspect]
     Indication: HYPERTENSION
     Dosage: DOSE: 1 VIAL
     Route: 030
     Dates: start: 20020101, end: 20020101
  2. CIDOPHAGE [Concomitant]
     Indication: DIABETES MELLITUS

REACTIONS (1)
  - FACIAL PALSY [None]
